FAERS Safety Report 22350966 (Version 9)
Quarter: 2025Q4

REPORT INFORMATION
  Report Type: Report from Study
  Country: EU (occurrence: EU)
  Receive Date: 20230522
  Receipt Date: 20251224
  Transmission Date: 20260117
  Serious: Yes (Death, Life-Threatening, Hospitalization, Other)
  Sender: TAKEDA
  Company Number: EU-TAKEDA-2023TUS049107

PATIENT
  Age: 72 Year
  Sex: Male

DRUGS (12)
  1. TEDUGLUTIDE [Suspect]
     Active Substance: TEDUGLUTIDE
     Indication: Short-bowel syndrome
     Dosage: 2.8 MILLIGRAM, QD
     Dates: start: 20200312, end: 20240718
  2. TEDUGLUTIDE [Suspect]
     Active Substance: TEDUGLUTIDE
     Dosage: 4.4 MILLIGRAM, 4/WEEK
     Dates: start: 20240718
  3. TEDUGLUTIDE [Suspect]
     Active Substance: TEDUGLUTIDE
  4. TEDUGLUTIDE [Suspect]
     Active Substance: TEDUGLUTIDE
  5. PANTOPRAZOLE SODIUM [Concomitant]
     Active Substance: PANTOPRAZOLE SODIUM
     Indication: Gastritis
     Dosage: 20 MILLIGRAM, BID
     Dates: start: 20230119
  6. LOPERAMIDE [Concomitant]
     Active Substance: LOPERAMIDE
     Indication: Stoma complication
     Dosage: 2 MILLIGRAM
  7. DETREMIN [Concomitant]
     Indication: Vitamin supplementation
     Dosage: 4 GTT DROPS, QD
     Dates: start: 20180914
  8. CALCIUM CARBONATE\CHOLECALCIFEROL [Concomitant]
     Active Substance: CALCIUM CARBONATE\CHOLECALCIFEROL
     Indication: Mineral supplementation
     Dosage: UNK UNK, QD
     Dates: start: 20181128
  9. CALCIUM CARBONATE\CHOLECALCIFEROL [Concomitant]
     Active Substance: CALCIUM CARBONATE\CHOLECALCIFEROL
     Indication: Vitamin supplementation
  10. SOLVEZINK [Concomitant]
     Indication: Zinc deficiency
     Dosage: UNK UNK, QD
     Dates: start: 20210618
  11. PROPIOMAZINE [Concomitant]
     Active Substance: PROPIOMAZINE
     Indication: Sleep disorder therapy
     Dosage: 25 MILLIGRAM
  12. BEVIPLEX FORTE [Concomitant]
     Indication: Crohn^s disease
     Dosage: UNK UNK, BID
     Dates: start: 20200108

REACTIONS (1)
  - Glioblastoma [Fatal]

NARRATIVE: CASE EVENT DATE: 20230508
